FAERS Safety Report 6292478-6 (Version None)
Quarter: 2009Q3

REPORT INFORMATION
  Report Type: 
  Country: None (occurrence: None)
  Receive Date: 20090731
  Receipt Date: 20090723
  Transmission Date: 20100115
  Serious: Yes (Hospitalization)
  Sender: FDA-Public Use
  Company Number: GB-PFIZER INC-2009244528

PATIENT
  Age: 56 Year

DRUGS (5)
  1. CHLORAMPHENICOL AND CHLORAMPHENICOL PALMITATE AND CHLORAMPHENICOL SODI [Suspect]
     Indication: EYE INFLAMMATION
     Dosage: UNK
     Route: 047
     Dates: start: 20080801, end: 20080901
  2. PREDNISOLONE AND PREDNISOLONE STEAGLATE [Suspect]
     Indication: EYE OPERATION
     Dosage: UNK
     Route: 047
     Dates: start: 20080801
  3. TOBRADEX [Suspect]
     Indication: EYE OPERATION
     Dosage: UNK
     Route: 047
     Dates: start: 20080717, end: 20080901
  4. TOBRADEX [Suspect]
     Indication: EYE INFLAMMATION
  5. BRIMONIDINE [Suspect]
     Indication: EYE OPERATION
     Dosage: UNK
     Route: 047
     Dates: start: 20080717, end: 20080901

REACTIONS (2)
  - ASTHMA [None]
  - HYPERSENSITIVITY [None]
